FAERS Safety Report 18262779 (Version 1)
Quarter: 2020Q3

REPORT INFORMATION
  Report Type: Spontaneous
  Country: US (occurrence: US)
  Receive Date: 20200914
  Receipt Date: 20200914
  Transmission Date: 20201103
  Serious: No
  Sender: FDA-Public Use
  Company Number: US-JNJFOC-20200845681

PATIENT
  Sex: Female

DRUGS (1)
  1. DURAGESIC [Suspect]
     Active Substance: FENTANYL
     Indication: SPINAL PAIN
     Route: 058

REACTIONS (6)
  - Product dose omission issue [Unknown]
  - Withdrawal syndrome [Unknown]
  - Off label use [Unknown]
  - Spinal pain [Unknown]
  - Inappropriate schedule of product administration [Unknown]
  - Depression [Unknown]
